FAERS Safety Report 5836877-2 (Version None)
Quarter: 2008Q3

REPORT INFORMATION
  Report Type: 
  Country: None (occurrence: None)
  Receive Date: 20080806
  Receipt Date: 20080806
  Transmission Date: 20090109
  Serious: Yes (Other)
  Sender: FDA-Public Use
  Company Number: None

PATIENT
  Sex: Female
  Weight: 58.0604 kg

DRUGS (2)
  1. REGLAN [Suspect]
     Indication: PROCEDURAL NAUSEA
     Dosage: IV 1 DOSE PRIOR TO SURGERY
     Route: 042
     Dates: start: 20050828, end: 20050828
  2. REGLAN [Suspect]
     Indication: PROCEDURAL NAUSEA
     Dosage: IV 1 DOSE PRIOR TO SURGERY
     Route: 042
     Dates: start: 20060804, end: 20060804

REACTIONS (11)
  - BLOOD PRESSURE INCREASED [None]
  - DRUG INEFFECTIVE [None]
  - EMOTIONAL DISORDER [None]
  - FEELING ABNORMAL [None]
  - FEELING JITTERY [None]
  - HEART RATE INCREASED [None]
  - NAUSEA [None]
  - PANIC ATTACK [None]
  - PERSONALITY CHANGE [None]
  - SIMILAR REACTION ON PREVIOUS EXPOSURE TO DRUG [None]
  - THINKING ABNORMAL [None]
